FAERS Safety Report 26059660 (Version 1)
Quarter: 2025Q4

REPORT INFORMATION
  Report Type: Spontaneous
  Country: CH (occurrence: CH)
  Receive Date: 20251118
  Receipt Date: 20251118
  Transmission Date: 20260118
  Serious: Yes (Other)
  Sender: AMGEN
  Company Number: CH-AMGEN-CHESP2025225169

PATIENT

DRUGS (1)
  1. PROLIA [Suspect]
     Active Substance: DENOSUMAB
     Indication: Breast cancer
     Dosage: UNK
     Route: 065

REACTIONS (4)
  - Spinal fracture [Unknown]
  - Bone metabolism biochemical marker increased [Unknown]
  - Bone density decreased [Unknown]
  - Fracture [Unknown]
